FAERS Safety Report 11410230 (Version 3)
Quarter: 2017Q3

REPORT INFORMATION
  Report Type: Spontaneous
  Country: US (occurrence: US)
  Receive Date: 20150824
  Receipt Date: 20170817
  Transmission Date: 20171127
  Serious: Yes (Other)
  Sender: FDA-Public Use
  Company Number: US-JNJFOC-20150809313

PATIENT
  Age: 21 Year
  Sex: Male

DRUGS (7)
  1. OXYMORPHONE [Suspect]
     Active Substance: OXYMORPHONE
     Indication: SUBSTANCE USE
     Route: 065
  2. HALOPERIDOL. [Suspect]
     Active Substance: HALOPERIDOL
     Indication: RESTLESSNESS
     Route: 042
  3. HALOPERIDOL. [Suspect]
     Active Substance: HALOPERIDOL
     Indication: CONFUSIONAL STATE
     Route: 042
  4. OXYCODONE [Suspect]
     Active Substance: OXYCODONE
     Indication: SUBSTANCE USE
     Route: 065
  5. HEROIN [Suspect]
     Active Substance: DIAMORPHINE
     Indication: SUBSTANCE USE
     Route: 065
  6. LORAZEPAM. [Suspect]
     Active Substance: LORAZEPAM
     Indication: ANXIETY
     Route: 065
  7. PIPERACILLIN/TAZOBACTAM [Suspect]
     Active Substance: PIPERACILLIN SODIUM\TAZOBACTAM SODIUM
     Indication: OESOPHAGEAL RUPTURE
     Route: 065

REACTIONS (3)
  - Delirium [Recovered/Resolved]
  - Rhabdomyolysis [Unknown]
  - Akathisia [Recovered/Resolved]
